FAERS Safety Report 9857491 (Version 1)
Quarter: 2014Q1

REPORT INFORMATION
  Report Type: Spontaneous
  Country: US (occurrence: US)
  Receive Date: 20140131
  Receipt Date: 20140131
  Transmission Date: 20141002
  Serious: Yes (Other)
  Sender: FDA-Public Use
  Company Number: PHEH2014US002045

PATIENT
  Sex: Male

DRUGS (2)
  1. AFINITOR [Suspect]
     Route: 048
  2. AFINITOR [Suspect]
     Route: 048
     Dates: start: 20140127

REACTIONS (3)
  - Lymphatic disorder [Unknown]
  - Pleural effusion [Unknown]
  - Infection [Unknown]
